FAERS Safety Report 13773442 (Version 2)
Quarter: 2017Q4

REPORT INFORMATION
  Report Type: Spontaneous
  Country: US (occurrence: US)
  Receive Date: 20170720
  Receipt Date: 20171126
  Transmission Date: 20180320
  Serious: Yes (Hospitalization)
  Sender: FDA-Public Use
  Company Number: US-009507513-1707USA002696

PATIENT
  Sex: Female

DRUGS (3)
  1. ROCURONIUM BROMIDE. [Suspect]
     Active Substance: ROCURONIUM BROMIDE
     Indication: PRODUCT USED FOR UNKNOWN INDICATION
     Dosage: UNK, UNKNOWN
     Route: 065
     Dates: start: 201707
  2. BRIDION [Suspect]
     Active Substance: SUGAMMADEX
     Dosage: 200 MG, UNKNOWN
     Route: 042
     Dates: start: 201707
  3. BRIDION [Suspect]
     Active Substance: SUGAMMADEX
     Indication: NEUROMUSCULAR BLOCKADE REVERSAL
     Dosage: 200 MG, UNKNOWN
     Route: 042
     Dates: start: 201707

REACTIONS (3)
  - Muscle twitching [Recovered/Resolved]
  - Recurrence of neuromuscular blockade [Recovered/Resolved]
  - Intentional overdose [Unknown]

NARRATIVE: CASE EVENT DATE: 201707
